FAERS Safety Report 12633342 (Version 2)
Quarter: 2016Q3

REPORT INFORMATION
  Report Type: Spontaneous
  Country: US (occurrence: US)
  Receive Date: 20160808
  Receipt Date: 20160808
  Transmission Date: 20161109
  Serious: No
  Sender: FDA-Public Use
  Company Number: US-BEH-2016060654

PATIENT
  Sex: Female
  Weight: 46 kg

DRUGS (14)
  1. METHOTREXATE. [Concomitant]
     Active Substance: METHOTREXATE
  2. LEUCOVORIN. [Concomitant]
     Active Substance: LEUCOVORIN
  3. VENTOLIN [Concomitant]
     Active Substance: ALBUTEROL SULFATE
  4. ATIVAN [Concomitant]
     Active Substance: LORAZEPAM
  5. HIZENTRA [Suspect]
     Active Substance: HUMAN IMMUNOGLOBULIN G
     Dosage: 4 G 20 ML VIALS
  6. LIDOCAINE. [Concomitant]
     Active Substance: LIDOCAINE
  7. MULTIVITAMINS [Concomitant]
     Active Substance: VITAMINS
  8. HIZENTRA [Suspect]
     Active Substance: HUMAN IMMUNOGLOBULIN G
     Indication: IMMUNODEFICIENCY COMMON VARIABLE
     Dosage: 1 G 5 ML VIALS
  9. DIPHENHYDRAMINE. [Concomitant]
     Active Substance: DIPHENHYDRAMINE
  10. EPIPEN [Concomitant]
     Active Substance: EPINEPHRINE
  11. HIZENTRA [Suspect]
     Active Substance: HUMAN IMMUNOGLOBULIN G
     Route: 058
  12. ACETAMINOPHEN. [Concomitant]
     Active Substance: ACETAMINOPHEN
  13. LEXAPRO [Concomitant]
     Active Substance: ESCITALOPRAM OXALATE
  14. TOPAMAX [Concomitant]
     Active Substance: TOPIRAMATE

REACTIONS (7)
  - Injection site injury [Unknown]
  - Injection site swelling [Unknown]
  - Injection site erythema [Unknown]
  - Headache [Unknown]
  - Diarrhoea [Unknown]
  - Chills [Unknown]
  - Abdominal pain [Unknown]
